FAERS Safety Report 15963483 (Version 3)
Quarter: 2022Q1

REPORT INFORMATION
  Report Type: Spontaneous
  Country: US (occurrence: US)
  Receive Date: 20190214
  Receipt Date: 20220222
  Transmission Date: 20220423
  Serious: Yes (Other)
  Sender: FDA-Public Use
  Company Number: US-ALLERGAN-1902326US

PATIENT
  Age: 41 Year
  Sex: Male

DRUGS (3)
  1. OZURDEX [Suspect]
     Active Substance: DEXAMETHASONE
     Indication: Uveitis
     Dosage: 0.7 MG, SINGLE
     Route: 031
     Dates: start: 20181017, end: 20181017
  2. OZURDEX [Suspect]
     Active Substance: DEXAMETHASONE
     Dosage: 0.7 MG, SINGLE
     Route: 031
     Dates: start: 20181011, end: 20181011
  3. PREDNISONE [Concomitant]
     Active Substance: PREDNISONE
     Route: 048

REACTIONS (3)
  - Intraocular pressure increased [Unknown]
  - Recalled product administered [Unknown]
  - Visual impairment [Recovered/Resolved]

NARRATIVE: CASE EVENT DATE: 20181218
